FAERS Safety Report 21222717 (Version 3)
Quarter: 2022Q4

REPORT INFORMATION
  Report Type: Spontaneous
  Country: US (occurrence: US)
  Receive Date: 20220817
  Receipt Date: 20221104
  Transmission Date: 20230112
  Serious: Yes (Other)
  Sender: FDA-Public Use
  Company Number: US-GLAXOSMITHKLINE-US2022AMR048257

PATIENT

DRUGS (5)
  1. ZEJULA [Suspect]
     Active Substance: NIRAPARIB
     Indication: Ovarian cancer
     Dosage: 200 MG, QD
     Route: 048
     Dates: start: 20190522
  2. ZEJULA [Suspect]
     Active Substance: NIRAPARIB
     Dosage: 200 MG, QD
  3. ZEJULA [Suspect]
     Active Substance: NIRAPARIB
     Dosage: 200 MG, QD
  4. ZEJULA [Suspect]
     Active Substance: NIRAPARIB
     Dosage: 200 MG, QD
  5. ZEJULA [Suspect]
     Active Substance: NIRAPARIB
     Dosage: 200 MG, QD

REACTIONS (19)
  - Diabetes mellitus [Unknown]
  - Blood glucose increased [Recovering/Resolving]
  - Arthralgia [Unknown]
  - Arthritis [Unknown]
  - Groin pain [Unknown]
  - Pain [Unknown]
  - Infection [Recovering/Resolving]
  - Weight decreased [Unknown]
  - Mood altered [Unknown]
  - Depressed mood [Unknown]
  - Muscle spasms [Unknown]
  - Gastritis [Unknown]
  - Alopecia [Unknown]
  - Fall [Unknown]
  - Joint injury [Unknown]
  - Pain in extremity [Unknown]
  - Gait inability [Unknown]
  - Neck pain [Unknown]
  - Insomnia [Recovering/Resolving]
